FAERS Safety Report 5218362-4 (Version None)
Quarter: 2007Q1

REPORT INFORMATION
  Report Type: 
  Country: None (occurrence: None)
  Receive Date: 20070124
  Receipt Date: 20070111
  Transmission Date: 20070707
  Serious: Yes (Death, Other)
  Sender: FDA-Public Use
  Company Number: US-PFIZER INC-2007004053

PATIENT
  Sex: Female

DRUGS (2)
  1. CELEBREX [Suspect]
     Dates: start: 19990501, end: 20040501
  2. BEXTRA [Suspect]
     Indication: ARTHRALGIA
     Dates: start: 20040501, end: 20041130

REACTIONS (1)
  - MYOCARDIAL INFARCTION [None]
